FAERS Safety Report 20852009 (Version 1)
Quarter: 2022Q2

REPORT INFORMATION
  Report Type: Spontaneous
  Country: US (occurrence: US)
  Receive Date: 20220520
  Receipt Date: 20220520
  Transmission Date: 20220721
  Serious: Yes (Hospitalization, Other)
  Sender: FDA-Public Use
  Company Number: US-BRISTOL-MYERS SQUIBB COMPANY-2022-026809

PATIENT
  Age: 73 Year
  Sex: Female

DRUGS (1)
  1. REVLIMID [Suspect]
     Active Substance: LENALIDOMIDE
     Indication: Product used for unknown indication
     Dosage: FREQUENCY: EVERY OTHER DAY ON DAY 1 TO DAY 21 THEN 7 DAYS OFF
     Route: 048
     Dates: start: 20220223

REACTIONS (2)
  - Ulcer haemorrhage [Recovered/Resolved]
  - Full blood count decreased [Recovered/Resolved]
